FAERS Safety Report 7543840-2 (Version None)
Quarter: 2011Q2

REPORT INFORMATION
  Report Type: 
  Country: None (occurrence: None)
  Receive Date: 20110613
  Receipt Date: 20110531
  Transmission Date: 20111010
  Serious: Yes (Other)
  Sender: FDA-Public Use
  Company Number: IT-MYLANLABS-2011S1011175

PATIENT
  Age: 44 Year
  Sex: Female

DRUGS (1)
  1. OXYBUTYNIN [Suspect]
     Indication: PRODUCT USED FOR UNKNOWN INDICATION
     Route: 048
     Dates: start: 20101215, end: 20110112

REACTIONS (2)
  - HYPOTENSION [None]
  - AGITATION [None]
